FAERS Safety Report 8154805-4 (Version None)
Quarter: 2012Q1

REPORT INFORMATION
  Report Type: 
  Country: None (occurrence: None)
  Receive Date: 20120221
  Receipt Date: 20120210
  Transmission Date: 20120608
  Serious: Yes (Hospitalization)
  Sender: FDA-Public Use
  Company Number: PHHY2012AR012213

PATIENT
  Sex: Male

DRUGS (2)
  1. RASILEZ [Suspect]
     Indication: HYPERTENSION
     Dosage: 2 DF, UNK
  2. DIOVAN [Concomitant]
     Dosage: 1 DF, DAILY

REACTIONS (3)
  - DIZZINESS [None]
  - NAUSEA [None]
  - BRADYCARDIA [None]
